FAERS Safety Report 21206965 (Version 1)
Quarter: 2022Q3

REPORT INFORMATION
  Report Type: Spontaneous
  Country: US (occurrence: None)
  Receive Date: 20220811
  Receipt Date: 20220811
  Transmission Date: 20221027
  Serious: Yes (Life-Threatening, Hospitalization, Disabling, Other)
  Sender: FDA-Public Use
  Company Number: None

PATIENT
  Age: 26 Year
  Sex: Male
  Weight: 65 kg

DRUGS (1)
  1. FOLIC ACID\METHYLCOBALAMIN\PYRIDOXINE [Suspect]
     Active Substance: FOLIC ACID\METHYLCOBALAMIN\PYRIDOXINE
     Indication: Routine health maintenance
     Route: 060
     Dates: start: 20210604, end: 20210720

REACTIONS (61)
  - Discomfort [None]
  - Hypersomnia [None]
  - Fatigue [None]
  - Paraesthesia [None]
  - Paraesthesia [None]
  - Paraesthesia [None]
  - Thirst [None]
  - Hypotension [None]
  - Sleep disorder [None]
  - Dyspnoea [None]
  - Dyspnoea [None]
  - Hypoaesthesia [None]
  - Feeling cold [None]
  - Feeling hot [None]
  - Mood swings [None]
  - Mental impairment [None]
  - Dizziness [None]
  - Gastrooesophageal reflux disease [None]
  - Histamine abnormal [None]
  - Exercise tolerance decreased [None]
  - Pain [None]
  - Myalgia [None]
  - Muscle atrophy [None]
  - Arthralgia [None]
  - Rash [None]
  - Dyspnoea [None]
  - Headache [None]
  - Hypovolaemia [None]
  - Heart rate increased [None]
  - Heart rate decreased [None]
  - Thyroid disorder [None]
  - Constipation [None]
  - Urinary tract disorder [None]
  - Dehydration [None]
  - Muscle spasms [None]
  - Dry skin [None]
  - Dry eye [None]
  - Hyperhidrosis [None]
  - Fatigue [None]
  - Syncope [None]
  - Peripheral coldness [None]
  - Alopecia [None]
  - Sleep disorder [None]
  - Restless legs syndrome [None]
  - Visual impairment [None]
  - Back pain [None]
  - Intervertebral disc protrusion [None]
  - Intervertebral disc degeneration [None]
  - Stomatitis [None]
  - Muscle twitching [None]
  - Nausea [None]
  - Nightmare [None]
  - Panic attack [None]
  - Tremor [None]
  - Joint noise [None]
  - Abdominal distension [None]
  - Sensory disturbance [None]
  - Chromaturia [None]
  - Asthenia [None]
  - Toxicity to various agents [None]
  - Product complaint [None]

NARRATIVE: CASE EVENT DATE: 20220604
